FAERS Safety Report 7324306-1 (Version None)
Quarter: 2011Q1

REPORT INFORMATION
  Report Type: 
  Country: None (occurrence: None)
  Receive Date: 20110301
  Receipt Date: 20110216
  Transmission Date: 20110831
  Serious: Yes (Hospitalization)
  Sender: FDA-Public Use
  Company Number: PT-MEDIMMUNE-MEDI-0012687

PATIENT
  Sex: Female

DRUGS (5)
  1. BUDESONIDE [Concomitant]
  2. ERGOCALCIFEROL [Concomitant]
  3. SYNAGIS [Suspect]
     Route: 030
     Dates: start: 20101013, end: 20110204
  4. IRON [Concomitant]
  5. SALBUTAMOL [Concomitant]

REACTIONS (3)
  - H1N1 INFLUENZA [None]
  - DRUG INEFFECTIVE [None]
  - RESPIRATORY SYNCYTIAL VIRUS INFECTION [None]
